FAERS Safety Report 4694300-8 (Version None)
Quarter: 2005Q2

REPORT INFORMATION
  Report Type: 
  Country: None (occurrence: None)
  Receive Date: 20050620
  Receipt Date: 20050527
  Transmission Date: 20051028
  Serious: Yes (Hospitalization)
  Sender: FDA-Public Use
  Company Number: FR-ABBOTT-05P-056-0302380-00

PATIENT
  Sex: Female

DRUGS (20)
  1. AKINETON [Suspect]
     Indication: DRUG USE FOR UNKNOWN INDICATION
     Route: 048
     Dates: end: 20041110
  2. CHLORPROMAZINE HCL [Suspect]
     Indication: DRUG USE FOR UNKNOWN INDICATION
     Route: 048
     Dates: end: 20040530
  3. CHLORPROMAZINE HCL [Suspect]
     Dates: start: 20041110, end: 20050111
  4. CHLORPROMAZINE HCL [Suspect]
     Dates: start: 20050112
  5. CHLORPROMAZINE HCL [Suspect]
     Dates: start: 20050222
  6. CLONAZEPAM [Suspect]
     Indication: DRUG USE FOR UNKNOWN INDICATION
     Route: 048
  7. CLONAZEPAM [Suspect]
     Dates: end: 20050111
  8. CLONAZEPAM [Suspect]
     Dates: start: 20050112
  9. CLONAZEPAM [Suspect]
     Dates: start: 20050222
  10. LITHIUM CARBONATE [Suspect]
     Indication: DRUG USE FOR UNKNOWN INDICATION
     Route: 048
     Dates: end: 20040101
  11. LITHIUM CARBONATE [Suspect]
     Dates: start: 20040801, end: 20050111
  12. LITHIUM CARBONATE [Suspect]
     Dates: start: 20050112
  13. LITHIUM CARBONATE [Suspect]
     Dates: start: 20050222
  14. RISPERIDONE [Concomitant]
     Indication: DRUG USE FOR UNKNOWN INDICATION
     Dates: end: 20040523
  15. HALOPERIDOL [Concomitant]
     Indication: DRUG USE FOR UNKNOWN INDICATION
     Dates: end: 20040301
  16. HALOPERIDOL [Concomitant]
     Dates: end: 20040523
  17. ZOPICLONE [Concomitant]
     Indication: DRUG USE FOR UNKNOWN INDICATION
     Dates: start: 20040825
  18. BROMOCRIPTINE MESYLATE [Concomitant]
     Indication: DRUG USE FOR UNKNOWN INDICATION
     Dosage: ONE HALF CAPSULE
     Dates: start: 20050222, end: 20050223
  19. NAPROXEN [Concomitant]
     Indication: DRUG USE FOR UNKNOWN INDICATION
     Dates: start: 20050222, end: 20050223
  20. HYDROXYZINE HYDROCHLORIDE [Concomitant]
     Indication: DRUG USE FOR UNKNOWN INDICATION
     Dates: start: 20050222

REACTIONS (3)
  - ABORTION [None]
  - BIPOLAR I DISORDER [None]
  - WEIGHT INCREASED [None]
